FAERS Safety Report 13766959 (Version 1)
Quarter: 2017Q3

REPORT INFORMATION
  Report Type: Spontaneous
  Country: None (occurrence: US)
  Receive Date: 20170719
  Receipt Date: 20170719
  Transmission Date: 20171127
  Serious: Yes (Hospitalization)
  Sender: FDA-Public Use
  Company Number: None

PATIENT
  Age: 64 Year
  Sex: Male
  Weight: 66.3 kg

DRUGS (1)
  1. MEMANTINE HYDROCHLORIDE (102290) [Suspect]
     Active Substance: MEMANTINE HYDROCHLORIDE
     Dates: end: 20170706

REACTIONS (3)
  - Asthenia [None]
  - Biliary dilatation [None]
  - Jaundice [None]

NARRATIVE: CASE EVENT DATE: 20170705
